FAERS Safety Report 8455020-7 (Version None)
Quarter: 2012Q2

REPORT INFORMATION
  Report Type: 
  Country: None (occurrence: None)
  Receive Date: 20120614
  Receipt Date: 20120614
  Transmission Date: 20120825
  Serious: Yes (Life-Threatening, Other)
  Sender: FDA-Public Use
  Company Number: None

PATIENT
  Age: 71 Year
  Sex: Male
  Weight: 76.5 kg

DRUGS (2)
  1. HUMIRA [Suspect]
     Indication: POLYMYOSITIS
  2. AZATHIOPRINE SODIUM [Suspect]

REACTIONS (3)
  - DERMATITIS [None]
  - HODGKIN'S DISEASE [None]
  - ANAEMIA [None]
